FAERS Safety Report 14829246 (Version 1)
Quarter: 2018Q2

REPORT INFORMATION
  Report Type: Spontaneous
  Country: US (occurrence: US)
  Receive Date: 20180430
  Receipt Date: 20180430
  Transmission Date: 20180711
  Serious: No
  Sender: FDA-Public Use
  Company Number: US-SHIRE-US201816054

PATIENT
  Sex: Female

DRUGS (1)
  1. XIIDRA [Suspect]
     Active Substance: LIFITEGRAST
     Indication: PRODUCT USED FOR UNKNOWN INDICATION
     Dosage: 1 GTT, 1X/DAY:QD AT NIGHT
     Route: 047

REACTIONS (4)
  - Instillation site pruritus [Unknown]
  - Instillation site lacrimation [Unknown]
  - Instillation site discharge [Unknown]
  - Rhinorrhoea [Unknown]
